FAERS Safety Report 8737979 (Version 3)
Quarter: 2014Q2

REPORT INFORMATION
  Report Type: Spontaneous
  Country: US (occurrence: US)
  Receive Date: 20120823
  Receipt Date: 20140428
  Transmission Date: 20141212
  Serious: Yes (Hospitalization, Other)
  Sender: FDA-Public Use
  Company Number: US-009507513-1208USA004585

PATIENT
  Sex: Male
  Weight: 71.66 kg

DRUGS (6)
  1. PROSCAR [Suspect]
     Indication: PROSTATOMEGALY
     Dosage: 5 MG, UNK
     Route: 048
     Dates: start: 1995, end: 2009
  2. FINASTERIDE [Suspect]
     Indication: PROSTATOMEGALY
     Dosage: 5 MG, UNK
     Route: 048
     Dates: start: 2007, end: 2009
  3. FLOMAX (TAMSULOSIN HYDROCHLORIDE) [Suspect]
     Indication: PROSTATOMEGALY
     Dosage: 0.4 MG, UNK
     Dates: start: 2007, end: 2007
  4. FINASTERIDE [Suspect]
     Indication: PROSTATOMEGALY
     Dosage: 5 MG, UNK
     Dates: start: 20060629, end: 20080317
  5. FINASTERIDE [Suspect]
     Indication: PROSTATOMEGALY
     Dosage: 5 MG, UNK
     Dates: start: 20080521, end: 20091001
  6. FINASTERIDE [Suspect]
     Indication: PROSTATOMEGALY
     Dosage: 5 MG, UNK
     Dates: start: 20080417, end: 200805

REACTIONS (7)
  - Prostate cancer [Unknown]
  - Radical prostatectomy [Recovering/Resolving]
  - Lymphadenectomy [Unknown]
  - Urine flow decreased [Unknown]
  - Abdominal mass [Unknown]
  - Sexual dysfunction [Unknown]
  - Cognitive disorder [Unknown]
